FAERS Safety Report 25523093 (Version 1)
Quarter: 2025Q3

REPORT INFORMATION
  Report Type: Spontaneous
  Country: US (occurrence: US)
  Receive Date: 20250707
  Receipt Date: 20250707
  Transmission Date: 20251020
  Serious: Yes (Death, Other)
  Sender: Kenvue
  Company Number: US-KENVUE-20250612024

PATIENT
  Sex: Female

DRUGS (1)
  1. BENADRYL [Suspect]
     Active Substance: DIPHENHYDRAMINE HYDROCHLORIDE
     Indication: Insomnia
     Route: 065

REACTIONS (2)
  - Dementia Alzheimer^s type [Fatal]
  - Product use in unapproved indication [Fatal]
